FAERS Safety Report 8377223-2 (Version None)
Quarter: 2012Q2

REPORT INFORMATION
  Report Type: 
  Country: None (occurrence: None)
  Receive Date: 20120521
  Receipt Date: 20120508
  Transmission Date: 20120825
  Serious: Yes (Other)
  Sender: FDA-Public Use
  Company Number: AUR-APL-2011-05544

PATIENT
  Age: 42 Year
  Sex: Female
  Weight: 63 kg

DRUGS (7)
  1. HYDROCHLOROTHIAZIDE [Suspect]
     Indication: HYPERTENSION
     Dosage: 50 MG, 1 D, UNKNOWN
  2. LIPITOR [Suspect]
     Indication: BLOOD CHOLESTEROL INCREASED
     Dosage: 20 MG, 1 D
     Dates: start: 20110101
  3. LIPITOR [Suspect]
     Indication: LIPIDS ABNORMAL
     Dosage: 20 MG, 1 D
     Dates: start: 20110101
  4. AMITRIPTYLINE HCL [Concomitant]
  5. BENAZEPRIL HYDROCHLORIDE [Suspect]
     Indication: HYPERTENSION
     Dosage: UNKNOWN
     Dates: start: 20060101, end: 20110101
  6. BENAZEPRIL HYDROCHLORIDE [Concomitant]
  7. HYDROCHLOROTHIAZIDE (HYDROCHLOROTHIAZID) [Concomitant]

REACTIONS (4)
  - WEIGHT DECREASED [None]
  - BLOOD POTASSIUM ABNORMAL [None]
  - BLOOD PRESSURE DECREASED [None]
  - MULTIPLE SCLEROSIS [None]
